FAERS Safety Report 13763658 (Version 2)
Quarter: 2017Q3

REPORT INFORMATION
  Report Type: Report from Study
  Country: US (occurrence: US)
  Receive Date: 20170718
  Receipt Date: 20170726
  Transmission Date: 20171127
  Serious: Yes (Other)
  Sender: FDA-Public Use
  Company Number: US-MALLINCKRODT-T201702879

PATIENT

DRUGS (2)
  1. REPOSITORY CORTICOTROPIN INJECTION [Suspect]
     Active Substance: CORTICOTROPIN
     Indication: PROTEINURIA
     Dosage: UNK
     Route: 065
  2. TACROLIMUS. [Concomitant]
     Active Substance: TACROLIMUS
     Indication: PRODUCT USED FOR UNKNOWN INDICATION
     Dosage: 1 MG,  THREE IN MORNING AND THREE IN AFTERNOON
     Route: 065

REACTIONS (5)
  - Cerebral haemorrhage [Unknown]
  - Cerebrovascular accident [Unknown]
  - Blister [Unknown]
  - Renal disorder [Unknown]
  - Blindness [Unknown]
